FAERS Safety Report 16874533 (Version 1)
Quarter: 2019Q4

REPORT INFORMATION
  Report Type: Spontaneous
  Country: FR (occurrence: FR)
  Receive Date: 20191001
  Receipt Date: 20191001
  Transmission Date: 20200122
  Serious: Yes (Other)
  Sender: FDA-Public Use
  Company Number: FR-MYLANLABS-2019M1089767

PATIENT
  Sex: Female
  Weight: 75 kg

DRUGS (8)
  1. EUPANTOL [Suspect]
     Active Substance: PANTOPRAZOLE SODIUM
     Indication: PRODUCT USED FOR UNKNOWN INDICATION
     Dosage: UNK
     Route: 048
     Dates: start: 2005
  2. LERCANIDIPINE [Suspect]
     Active Substance: LERCANIDIPINE
     Indication: PRODUCT USED FOR UNKNOWN INDICATION
     Dosage: 10 MILLIGRAM
     Route: 048
     Dates: start: 2013
  3. BISOPROLOL [Suspect]
     Active Substance: BISOPROLOL
     Indication: PRODUCT USED FOR UNKNOWN INDICATION
     Dosage: 10 MILLIGRAM
     Route: 048
     Dates: start: 2003
  4. PAROXETINE. [Suspect]
     Active Substance: PAROXETINE
     Indication: PRODUCT USED FOR UNKNOWN INDICATION
     Dosage: 20 MILLIGRAM
     Route: 048
     Dates: start: 2015
  5. AMIODARONE MYLAN [Suspect]
     Active Substance: AMIODARONE
     Indication: PRODUCT USED FOR UNKNOWN INDICATION
     Dosage: UNK
     Route: 065
  6. ZOPICLONE [Suspect]
     Active Substance: ZOPICLONE
     Indication: PRODUCT USED FOR UNKNOWN INDICATION
     Dosage: 7.5 MILLIGRAM
     Route: 048
     Dates: start: 2003
  7. FUROSEMIDE MYLAN [Suspect]
     Active Substance: FUROSEMIDE
     Indication: PRODUCT USED FOR UNKNOWN INDICATION
     Dosage: 40 MILLIGRAM
     Route: 048
     Dates: start: 2003
  8. CORDARONE [Suspect]
     Active Substance: AMIODARONE HYDROCHLORIDE
     Indication: PRODUCT USED FOR UNKNOWN INDICATION
     Dosage: 200 MILLIGRAM
     Route: 048
     Dates: start: 201610

REACTIONS (24)
  - Burning sensation [Unknown]
  - Myalgia [Unknown]
  - Constipation [Unknown]
  - Alopecia [Unknown]
  - Myopathy [Unknown]
  - Pruritus [Not Recovered/Not Resolved]
  - Fall [Unknown]
  - Platelet count decreased [Unknown]
  - Arthropathy [Unknown]
  - Skin discolouration [Unknown]
  - Sleep disorder [Unknown]
  - Balance disorder [Unknown]
  - Blister [Unknown]
  - Headache [Unknown]
  - Vision blurred [Unknown]
  - Chills [Unknown]
  - Skin disorder [Unknown]
  - Paraparesis [Not Recovered/Not Resolved]
  - Flushing [Unknown]
  - Photosensitivity reaction [Unknown]
  - Peripheral vascular disorder [Unknown]
  - Visual impairment [Unknown]
  - Decreased appetite [Unknown]
  - Dry mouth [Unknown]
